FAERS Safety Report 25001833 (Version 2)
Quarter: 2025Q1

REPORT INFORMATION
  Report Type: Other
  Country: CA (occurrence: CA)
  Receive Date: 20250224
  Receipt Date: 20250321
  Transmission Date: 20250409
  Serious: Yes (Death, Hospitalization, Other)
  Sender: APOTEX
  Company Number: CA-APOTEX-2025AP002140

PATIENT
  Age: 54 Year
  Sex: Male

DRUGS (17)
  1. CLONAZEPAM [Interacting]
     Active Substance: CLONAZEPAM
     Indication: Bipolar disorder
     Route: 048
  2. QUETIAPINE [Interacting]
     Active Substance: QUETIAPINE
     Indication: Bipolar disorder
     Route: 048
  3. RISPERIDONE [Interacting]
     Active Substance: RISPERIDONE
     Indication: Product used for unknown indication
     Route: 065
  4. VALPROIC ACID [Interacting]
     Active Substance: VALPROIC ACID
     Indication: Product used for unknown indication
     Route: 065
  5. SERTRALINE [Interacting]
     Active Substance: SERTRALINE HYDROCHLORIDE
     Indication: Bipolar disorder
     Route: 048
  6. ZOPICLONE [Interacting]
     Active Substance: ZOPICLONE
     Indication: Product used for unknown indication
     Route: 065
  7. ATAZANAVIR [Interacting]
     Active Substance: ATAZANAVIR
     Indication: HIV infection
     Route: 048
  8. LAMIVUDINE [Interacting]
     Active Substance: LAMIVUDINE
     Indication: HIV infection
     Route: 048
  9. BUPROPION [Interacting]
     Active Substance: BUPROPION
     Indication: Bipolar disorder
     Route: 065
  10. FUZEON [Interacting]
     Active Substance: ENFUVIRTIDE
     Indication: HIV infection
     Route: 065
  11. ISENTRESS [Interacting]
     Active Substance: RALTEGRAVIR POTASSIUM
     Indication: HIV infection
     Dosage: 400 MILLIGRAM, BID
     Route: 048
  12. KALETRA [Interacting]
     Active Substance: LOPINAVIR\RITONAVIR
     Indication: HIV infection
     Route: 048
  13. LOPINAVIR [Interacting]
     Active Substance: LOPINAVIR
     Indication: HIV infection
     Dosage: 800 MILLIGRAM, QD
     Route: 048
  14. RITONAVIR [Interacting]
     Active Substance: RITONAVIR
     Indication: HIV infection
     Route: 065
  15. SUSTIVA [Interacting]
     Active Substance: EFAVIRENZ
     Indication: HIV infection
     Route: 048
  16. VIREAD [Interacting]
     Active Substance: TENOFOVIR DISOPROXIL FUMARATE
     Indication: Product used for unknown indication
     Route: 048
  17. EMTRIVA [Concomitant]
     Active Substance: EMTRICITABINE
     Indication: Product used for unknown indication
     Route: 065

REACTIONS (15)
  - Depression suicidal [Fatal]
  - Drug interaction [Fatal]
  - Loss of personal independence in daily activities [Fatal]
  - Paranoia [Fatal]
  - Psychiatric decompensation [Fatal]
  - Intentional product use issue [Fatal]
  - Prescribed overdose [Fatal]
  - Incorrect route of product administration [Fatal]
  - Tearfulness [Fatal]
  - Psychomotor skills impaired [Fatal]
  - Psychotic disorder [Fatal]
  - Suicidal ideation [Fatal]
  - Depressive symptom [Fatal]
  - Anxiety [Fatal]
  - Depression [Fatal]
